FAERS Safety Report 24463612 (Version 1)
Quarter: 2024Q4

REPORT INFORMATION
  Report Type: Report from Study
  Country: US (occurrence: US)
  Receive Date: 20241018
  Receipt Date: 20241018
  Transmission Date: 20250115
  Serious: No
  Sender: ROCHE
  Company Number: US-ROCHE-3417752

PATIENT
  Age: 48 Year
  Sex: Female
  Weight: 92.08 kg

DRUGS (17)
  1. XOLAIR [Suspect]
     Active Substance: OMALIZUMAB
     Indication: Asthma
     Dosage: 150MG/ML
     Route: 058
     Dates: start: 20220502
  2. XOLAIR [Suspect]
     Active Substance: OMALIZUMAB
     Indication: Nasal polyps
  3. XOLAIR [Suspect]
     Active Substance: OMALIZUMAB
     Indication: Asthma
  4. XOLAIR [Suspect]
     Active Substance: OMALIZUMAB
     Indication: Asthma
     Route: 058
  5. XOLAIR [Suspect]
     Active Substance: OMALIZUMAB
     Indication: Nasal polyps
  6. BENZONATATE [Concomitant]
     Active Substance: BENZONATATE
  7. BUDESONIDE [Concomitant]
     Active Substance: BUDESONIDE
  8. BREZTRI [Concomitant]
     Active Substance: BUDESONIDE\FORMOTEROL\GLYCOPYRROLATE
  9. ALBUTEROL [Concomitant]
     Active Substance: ALBUTEROL
  10. FLUTICASONE [Concomitant]
     Active Substance: FLUTICASONE
  11. LEVOFLOXACIN [Concomitant]
     Active Substance: LEVOFLOXACIN
  12. MONTELUKAST [Concomitant]
     Active Substance: MONTELUKAST
  13. NYSTATIN [Concomitant]
     Active Substance: NYSTATIN
  14. OMEPRAZOLE [Concomitant]
     Active Substance: OMEPRAZOLE
  15. PREDNISONE [Concomitant]
     Active Substance: PREDNISONE
  16. PAROXETINE [Concomitant]
     Active Substance: PAROXETINE
  17. VITAMIN D2 [Concomitant]
     Active Substance: ERGOCALCIFEROL

REACTIONS (1)
  - Illness [Not Recovered/Not Resolved]
